FAERS Safety Report 13522498 (Version 1)
Quarter: 2017Q2

REPORT INFORMATION
  Report Type: Spontaneous
  Country: US (occurrence: US)
  Receive Date: 20170508
  Receipt Date: 20170508
  Transmission Date: 20170830
  Serious: No
  Sender: FDA-Public Use
  Company Number: US-BAUSCH-BL-2016-015802

PATIENT
  Sex: Female

DRUGS (2)
  1. OSMOPREP [Suspect]
     Active Substance: SODIUM PHOSPHATE, DIBASIC, ANHYDROUS\SODIUM PHOSPHATE, MONOBASIC, MONOHYDRATE
     Indication: BOWEL PREPARATION
     Dosage: TOOK 4 TABLETS ORALLY WITH 8 OUNCES OF CLEAR LIQUIDS EVERY 15 MINUTES FOR A TOTAL OF 20 TABLETS
     Route: 048
     Dates: start: 20160629, end: 20160629
  2. OSMOPREP [Suspect]
     Active Substance: SODIUM PHOSPHATE, DIBASIC, ANHYDROUS\SODIUM PHOSPHATE, MONOBASIC, MONOHYDRATE
     Dosage: TOOK 4 TABLETS ORALLY WITH 8 OUNCES OF CLEAR LIQUIDS EVERY 15 MINUTES FOR A TOTAL OF 12 TABLETS
     Route: 048
     Dates: start: 20160630, end: 20160630

REACTIONS (1)
  - Drug effect incomplete [Unknown]
